FAERS Safety Report 7919807-9 (Version None)
Quarter: 2011Q4

REPORT INFORMATION
  Report Type: 
  Country: None (occurrence: None)
  Receive Date: 20111117
  Receipt Date: 20111117
  Transmission Date: 20120403
  Serious: Yes (Hospitalization)
  Sender: FDA-Public Use
  Company Number: None

PATIENT
  Sex: Female
  Weight: 62 kg

DRUGS (1)
  1. KEPPRA [Suspect]

REACTIONS (3)
  - AGGRESSION [None]
  - MEMORY IMPAIRMENT [None]
  - MENTAL STATUS CHANGES [None]
